FAERS Safety Report 9463169 (Version 4)
Quarter: 2014Q1

REPORT INFORMATION
  Report Type: Report from Study
  Country: US (occurrence: US)
  Receive Date: 20130817
  Receipt Date: 20140219
  Transmission Date: 20141002
  Serious: Yes (Other)
  Sender: FDA-Public Use
  Company Number: US-ROCHE-1260387

PATIENT
  Age: 63 Year
  Sex: Female

DRUGS (12)
  1. AVASTIN [Suspect]
     Indication: DIABETIC RETINOPATHY
     Route: 065
  2. AVASTIN [Suspect]
     Indication: MACULAR OEDEMA
  3. LUCENTIS [Suspect]
     Indication: DIABETIC RETINOPATHY
     Dosage: INJ, OD, 4MM POSTERIOR LIMBUS/SUPERIOR TEMP QUAD.?IVT RIGHT EYE WAS INJECTED.
     Route: 050
     Dates: start: 20130819
  4. LUCENTIS [Suspect]
     Indication: DIABETIC RETINAL OEDEMA
  5. LUCENTIS [Suspect]
     Indication: DIABETIC EYE DISEASE
  6. LUCENTIS [Suspect]
     Indication: INTRAOCULAR LENS IMPLANT
  7. LUCENTIS [Suspect]
     Indication: CATARACT NUCLEAR
  8. LUCENTIS [Suspect]
     Indication: VITREOUS FLOATERS
  9. ERYTHROMYCIN OINTMENT [Concomitant]
     Dosage: AFTER INJECTIONS
     Route: 065
  10. NOVOLIN [Concomitant]
     Dosage: 45 UNITS BD
     Route: 065
  11. LOVASTATIN [Concomitant]
     Route: 065
  12. FENOBRATE [Concomitant]

REACTIONS (28)
  - Haemorrhage [Unknown]
  - Retinal aneurysm [Unknown]
  - Visual acuity reduced [Unknown]
  - Macular oedema [Unknown]
  - Vitreous floaters [Unknown]
  - Retinal exudates [Unknown]
  - Vision blurred [Unknown]
  - Neck pain [Unknown]
  - Visual acuity reduced [Unknown]
  - Visual impairment [Unknown]
  - Sinus disorder [Unknown]
  - Blood cholesterol increased [Unknown]
  - Hypertension [Unknown]
  - Constipation [Unknown]
  - Diarrhoea [Unknown]
  - Pollakiuria [Unknown]
  - Arthralgia [Unknown]
  - Back pain [Unknown]
  - Amnesia [Unknown]
  - Hypoaesthesia [Unknown]
  - Paraesthesia [Unknown]
  - Asthenia [Unknown]
  - Neuropathy peripheral [Unknown]
  - Diabetes mellitus [Unknown]
  - Temperature intolerance [Unknown]
  - Vitreous floaters [Unknown]
  - Scar [Unknown]
  - Aneurysm ruptured [Unknown]
